FAERS Safety Report 10655126 (Version 1)
Quarter: 2014Q4

REPORT INFORMATION
  Report Type: Report from Study
  Country: US (occurrence: US)
  Receive Date: 20141216
  Receipt Date: 20141216
  Transmission Date: 20150529
  Serious: Yes (Hospitalization, Other)
  Sender: FDA-Public Use
  Company Number: US-ABBVIE-14K-163-1319855-00

PATIENT
  Age: 66 Year
  Sex: Female
  Weight: 74.91 kg

DRUGS (7)
  1. METOPROLOL TARTRATE. [Concomitant]
     Active Substance: METOPROLOL TARTRATE
     Indication: HYPERTENSION
  2. LISINOPRIL. [Concomitant]
     Active Substance: LISINOPRIL
     Indication: HYPERTENSION
  3. METHOTREXATE [Concomitant]
     Active Substance: METHOTREXATE
     Indication: RHEUMATOID ARTHRITIS
  4. LORAZEPAM. [Concomitant]
     Active Substance: LORAZEPAM
     Indication: ANXIETY
  5. HUMIRA [Suspect]
     Active Substance: ADALIMUMAB
     Indication: RHEUMATOID ARTHRITIS
     Route: 058
     Dates: start: 2010, end: 201006
  6. HUMIRA [Suspect]
     Active Substance: ADALIMUMAB
     Indication: PSORIATIC ARTHROPATHY
     Route: 058
     Dates: end: 2010
  7. METHOTREXATE [Concomitant]
     Active Substance: METHOTREXATE
     Indication: PSORIATIC ARTHROPATHY
     Dates: end: 2011

REACTIONS (16)
  - General physical health deterioration [Unknown]
  - Gait disturbance [Recovered/Resolved]
  - Herpes zoster [Recovered/Resolved]
  - Weight fluctuation [Not Recovered/Not Resolved]
  - Osteoarthritis [Recovered/Resolved]
  - Drug ineffective [Not Recovered/Not Resolved]
  - Surgical failure [Unknown]
  - Osteoarthritis [Recovered/Resolved]
  - Scar [Not Recovered/Not Resolved]
  - Arthropathy [Recovered/Resolved]
  - Bladder prolapse [Recovered/Resolved]
  - Weight decreased [Recovered/Resolved]
  - Arthralgia [Not Recovered/Not Resolved]
  - Pallor [Recovered/Resolved]
  - Atrial fibrillation [Not Recovered/Not Resolved]
  - Post procedural complication [Recovered/Resolved]

NARRATIVE: CASE EVENT DATE: 2009
